FAERS Safety Report 7502489-8 (Version None)
Quarter: 2011Q2

REPORT INFORMATION
  Report Type: 
  Country: None (occurrence: None)
  Receive Date: 20110517
  Receipt Date: 20110510
  Transmission Date: 20111010
  Serious: Yes (Other)
  Sender: FDA-Public Use
  Company Number: 1000020871

PATIENT
  Age: 43 Year
  Sex: Male
  Weight: 178.2 kg

DRUGS (13)
  1. HYDROCHLOROTHIAZIDE [Suspect]
     Indication: HYPERTENSION
     Dosage: 25 MG (25 MG, 1 IN 1 D),
     Dates: start: 20110201
  2. NORVASC [Suspect]
     Indication: HYPERTENSION
     Dosage: 10 MG (10 MG, 1 IN 1 D), ORAL
     Route: 048
     Dates: start: 20110201
  3. FISH OIL [Concomitant]
  4. GARLIC [Concomitant]
  5. PHENTERMINE (PHENTERMINE) (CAPSULES) [Suspect]
     Indication: HYPERTENSION
     Dosage: 75 MG (37.5 MG, 2 IN 1 D),
     Dates: start: 20110201
  6. KELP [Concomitant]
  7. CINNAMON (CINNAMOMUM VERUM) [Concomitant]
  8. BYSTOLIC [Suspect]
     Indication: HYPERTENSION
     Dosage: 10 MG (10 MG, 1 IN 1 D),
     Dates: start: 20110301
  9. ASPIRIN [Concomitant]
  10. M.V.I. [Concomitant]
  11. SIMVASTATIN [Concomitant]
  12. COENZYME Q10 [Concomitant]
  13. FERROUS SULFATE TAB [Concomitant]

REACTIONS (7)
  - CATARACT [None]
  - WEIGHT INCREASED [None]
  - SUDDEN VISUAL LOSS [None]
  - WHITE BLOOD CELL COUNT INCREASED [None]
  - GOUT [None]
  - PAIN IN EXTREMITY [None]
  - SEDATION [None]
